FAERS Safety Report 5515438-9 (Version None)
Quarter: 2007Q4

REPORT INFORMATION
  Report Type: 
  Country: None (occurrence: None)
  Receive Date: 20071113
  Receipt Date: 20070215
  Transmission Date: 20080405
  Serious: No
  Sender: FDA-Public Use
  Company Number: A0639734A

PATIENT
  Age: 71 Year
  Sex: Male

DRUGS (8)
  1. CARVEDILOL [Suspect]
     Indication: HYPERTENSION
     Dosage: 3.125MG TWICE PER DAY
     Route: 048
  2. ATENOLOL [Concomitant]
  3. MIDODRINE [Concomitant]
  4. INSULIN [Concomitant]
  5. PHOSLO [Concomitant]
  6. EPOGEN [Concomitant]
  7. HECTOROL [Concomitant]
  8. FLUDROCORTISONE ACETATE [Concomitant]

REACTIONS (2)
  - DIARRHOEA [None]
  - HEART RATE INCREASED [None]
